FAERS Safety Report 7369082-1 (Version None)
Quarter: 2011Q1

REPORT INFORMATION
  Report Type: 
  Country: None (occurrence: None)
  Receive Date: 20110321
  Receipt Date: 20110321
  Transmission Date: 20110831
  Serious: Yes (Hospitalization)
  Sender: FDA-Public Use
  Company Number: None

PATIENT
  Age: 58 Year
  Sex: Male
  Weight: 47 kg

DRUGS (13)
  1. ALBUTEROL INHALER [Concomitant]
  2. CELEXA [Concomitant]
  3. LOVENOX [Concomitant]
  4. DILTIAZEM HCL [Concomitant]
  5. LORTAB [Concomitant]
  6. TEMSIROLIMUS [Suspect]
     Indication: NON-SMALL CELL LUNG CANCER
     Dosage: 15 MG, Q WEEKLY, IV
     Route: 042
     Dates: start: 20110203, end: 20110217
  7. TESSALON [Concomitant]
  8. LISINOPRIL AND HYDROCHLOROTHIAZIDE [Concomitant]
  9. ASPIRIN [Concomitant]
  10. DOCUSATE [Concomitant]
  11. PEMETREXED [Suspect]
     Indication: NON-SMALL CELL LUNG CANCER
     Dosage: 375 MG/M2, Q 3 WEEKS, IV
     Route: 042
     Dates: start: 20110203
  12. CLONAZEPAM [Concomitant]
  13. ADVAIR DISKUS 100/50 [Concomitant]

REACTIONS (2)
  - PNEUMONIA [None]
  - PERFORMANCE STATUS DECREASED [None]
